FAERS Safety Report 7412260-3 (Version None)
Quarter: 2011Q2

REPORT INFORMATION
  Report Type: 
  Country: None (occurrence: None)
  Receive Date: 20110413
  Receipt Date: 20110330
  Transmission Date: 20111010
  Serious: Yes (Other)
  Sender: FDA-Public Use
  Company Number: JP-ROCHE-762656

PATIENT
  Sex: Male
  Weight: 58 kg

DRUGS (31)
  1. DEXART [Concomitant]
     Route: 041
     Dates: start: 20101126, end: 20101126
  2. DEXART [Concomitant]
     Route: 041
     Dates: start: 20110112, end: 20110112
  3. VENA [Concomitant]
     Route: 048
     Dates: start: 20101126, end: 20101126
  4. VENA [Concomitant]
     Route: 048
     Dates: start: 20101220, end: 20101220
  5. VENA [Concomitant]
     Route: 048
     Dates: start: 20110112, end: 20110112
  6. EMEND [Concomitant]
     Route: 048
     Dates: start: 20101220, end: 20101220
  7. EMEND [Concomitant]
     Route: 048
     Dates: start: 20110203, end: 20110204
  8. INDISETRON HYDROCHLORIDE [Concomitant]
     Route: 048
     Dates: start: 20110202, end: 20110202
  9. EMEND [Concomitant]
     Route: 048
     Dates: start: 20101126, end: 20101126
  10. CARBOPLATIN [Concomitant]
     Indication: LUNG ADENOCARCINOMA
     Dosage: DOSAGE IS UNCERTAIN.
     Route: 041
     Dates: start: 20101126, end: 20101126
  11. PACLITAXEL [Concomitant]
     Route: 041
     Dates: start: 20101220, end: 20101220
  12. DEXART [Concomitant]
     Route: 041
     Dates: start: 20101220, end: 20101220
  13. AVASTIN [Suspect]
     Indication: LUNG ADENOCARCINOMA
     Route: 041
     Dates: start: 20101126, end: 20110223
  14. EMEND [Concomitant]
     Route: 048
     Dates: start: 20110223, end: 20110223
  15. PROTECADIN [Concomitant]
     Route: 048
     Dates: start: 20101127
  16. CARBOPLATIN [Concomitant]
     Dosage: DOSAGE IS UNCERTAIN.
     Route: 041
     Dates: start: 20101220, end: 20101220
  17. CARBOPLATIN [Concomitant]
     Dosage: DOSAGE IS UNCERTAIN.
     Route: 041
     Dates: start: 20110202, end: 20110202
  18. VENA [Concomitant]
     Route: 048
     Dates: start: 20110202, end: 20110202
  19. INDISETRON HYDROCHLORIDE [Concomitant]
     Dosage: DRUG NAME REPORTED AS SINSERON
     Route: 048
     Dates: start: 20101126, end: 20101128
  20. INDISETRON HYDROCHLORIDE [Concomitant]
     Route: 048
     Dates: start: 20110112, end: 20110112
  21. EMEND [Concomitant]
     Route: 048
     Dates: start: 20101221, end: 20101222
  22. EMEND [Concomitant]
     Route: 048
     Dates: start: 20110202, end: 20110202
  23. PACLITAXEL [Concomitant]
     Route: 041
     Dates: start: 20110202, end: 20110202
  24. DEXART [Concomitant]
     Route: 041
     Dates: start: 20110202, end: 20110202
  25. DECADRON [Concomitant]
     Route: 048
     Dates: start: 20101127, end: 20101128
  26. PACLITAXEL [Concomitant]
     Indication: LUNG ADENOCARCINOMA
     Route: 041
     Dates: start: 20101126, end: 20101126
  27. INDISETRON HYDROCHLORIDE [Concomitant]
     Route: 048
     Dates: start: 20101220, end: 20101220
  28. EMEND [Concomitant]
     Route: 048
     Dates: start: 20110113, end: 20110114
  29. CARBOPLATIN [Concomitant]
     Dosage: DOSAGE IS UNCERTAIN.
     Route: 041
     Dates: start: 20110112, end: 20110112
  30. PACLITAXEL [Concomitant]
     Route: 041
     Dates: start: 20110112, end: 20110112
  31. EMEND [Concomitant]
     Route: 048
     Dates: start: 20110112, end: 20110112

REACTIONS (2)
  - RETINAL TEAR [None]
  - RETINAL DETACHMENT [None]
